FAERS Safety Report 6986174-7 (Version None)
Quarter: 2010Q3

REPORT INFORMATION
  Report Type: 
  Country: None (occurrence: None)
  Receive Date: 20100915
  Receipt Date: 20090603
  Transmission Date: 20110219
  Serious: No
  Sender: FDA-Public Use
  Company Number: US-WYE-H09603409

PATIENT
  Sex: Male
  Weight: 113.5 kg

DRUGS (5)
  1. PRISTIQ [Suspect]
     Indication: ANXIETY
     Route: 048
     Dates: start: 20090520
  2. PRISTIQ [Suspect]
     Indication: AGITATION
  3. EFFEXOR XR [Suspect]
  4. EFFEXOR XR [Suspect]
     Dosage: ^TAPERING DOWN^
     Dates: end: 20090501
  5. EFFEXOR XR [Suspect]
     Dates: start: 20090501

REACTIONS (4)
  - DRUG WITHDRAWAL SYNDROME [None]
  - FEELING ABNORMAL [None]
  - INSOMNIA [None]
  - MALAISE [None]
